FAERS Safety Report 4908409-4 (Version None)
Quarter: 2006Q1

REPORT INFORMATION
  Report Type: 
  Country: None (occurrence: None)
  Receive Date: 20060210
  Receipt Date: 20040528
  Transmission Date: 20060701
  Serious: No
  Sender: FDA-Public Use
  Company Number: US-GLAXOSMITHKLINE-A0512623A

PATIENT
  Age: 31 Year
  Sex: Female

DRUGS (2)
  1. PAXIL CR [Suspect]
     Indication: MAJOR DEPRESSION
     Dosage: 37.5MG PER DAY
     Route: 048
  2. NO CONCURRENT MEDICATION [Concomitant]

REACTIONS (5)
  - DIZZINESS [None]
  - HEADACHE [None]
  - PARAESTHESIA [None]
  - SENSORY DISTURBANCE [None]
  - VISUAL DISTURBANCE [None]
